FAERS Safety Report 17849886 (Version 1)
Quarter: 2020Q2

REPORT INFORMATION
  Report Type: Spontaneous
  Country: LV (occurrence: LV)
  Receive Date: 20200602
  Receipt Date: 20200602
  Transmission Date: 20200714
  Serious: Yes (Other)
  Sender: FDA-Public Use
  Company Number: LV-TEVA-2020-LV-1242766

PATIENT
  Age: 46 Year
  Sex: Male
  Weight: 96 kg

DRUGS (3)
  1. TRIVERAM 20 MG/5 MG/5 MG APVALKOTAS TABLETES [Concomitant]
     Indication: HYPERTENSION
     Route: 048
  2. NEBIPHAR 5 MG TABLETES [Suspect]
     Active Substance: NEBIVOLOL HYDROCHLORIDE
     Indication: TACHYCARDIA
  3. NEBIPHAR 5 MG TABLETES [Suspect]
     Active Substance: NEBIVOLOL HYDROCHLORIDE
     Indication: HYPERTENSION
     Dosage: 5 MG
     Route: 048
     Dates: start: 20191212, end: 20191220

REACTIONS (4)
  - Drug ineffective [Unknown]
  - Hypertension [Unknown]
  - Tachycardia [Unknown]
  - Head discomfort [Unknown]

NARRATIVE: CASE EVENT DATE: 20191213
